FAERS Safety Report 10428974 (Version 2)
Quarter: 2015Q1

REPORT INFORMATION
  Report Type: Spontaneous
  Country: IT (occurrence: IT)
  Receive Date: 20140904
  Receipt Date: 20150219
  Transmission Date: 20150720
  Serious: Yes (Hospitalization, Other)
  Sender: FDA-Public Use
  Company Number: IT-BIOGENIDEC-2014BI087268

PATIENT
  Age: 60 Year
  Sex: Female

DRUGS (3)
  1. LYRICA [Concomitant]
     Active Substance: PREGABALIN
     Indication: PAIN
     Route: 002
     Dates: start: 20140326, end: 20140401
  2. TYSABRI [Suspect]
     Active Substance: NATALIZUMAB
     Indication: MULTIPLE SCLEROSIS
     Route: 042
     Dates: start: 20110110, end: 20140313
  3. BACLOFEN. [Concomitant]
     Active Substance: BACLOFEN
     Indication: MUSCLE SPASTICITY
     Route: 002
     Dates: start: 20010101, end: 20140401

REACTIONS (2)
  - Ischaemic stroke [Unknown]
  - Carotid artery thrombosis [Unknown]

NARRATIVE: CASE EVENT DATE: 20140331
